FAERS Safety Report 23916033 (Version 1)
Quarter: 2024Q2

REPORT INFORMATION
  Report Type: Spontaneous
  Country: US (occurrence: None)
  Receive Date: 20240528
  Receipt Date: 20240528
  Transmission Date: 20240716
  Serious: Yes (Hospitalization)
  Sender: FDA-Public Use
  Company Number: None

PATIENT
  Age: 75 Year
  Sex: Female

DRUGS (20)
  1. ADEMPAS [Suspect]
     Active Substance: RIOCIGUAT
     Dates: start: 20231221, end: 20240424
  2. REMODULIN [Concomitant]
  3. lanzoprozole [Concomitant]
  4. Bosenten [Concomitant]
  5. Aspirin [Concomitant]
  6. MOTEGRITY [Concomitant]
  7. LEVOTHYROXINE [Concomitant]
  8. LASIX [Concomitant]
     Active Substance: FUROSEMIDE
  9. POTASSIUM [Concomitant]
  10. CRESTOR [Concomitant]
     Active Substance: ROSUVASTATIN CALCIUM
  11. SPIRONOLACTONE [Concomitant]
  12. EVOXAC [Concomitant]
  13. FISH OIL [Concomitant]
  14. VITAMIN D [Concomitant]
     Active Substance: VITAMIN D NOS
  15. RECLAST [Concomitant]
     Active Substance: ZOLEDRONIC ACID
  16. TETANUS ANTITOXIN [Concomitant]
     Active Substance: TETANUS ANTITOXIN
  17. COVID vaccine [Concomitant]
  18. PREVNAR [Concomitant]
     Active Substance: PNEUMOCOCCAL 7-VALENT CONJUGATE VACCINE (DIPHTHERIA CRM197 PROTEIN)
  19. shingles vaccine [Concomitant]
  20. RSV VACCINE [Concomitant]

REACTIONS (3)
  - Dyspnoea exertional [None]
  - Oxygen saturation decreased [None]
  - Therapy cessation [None]

NARRATIVE: CASE EVENT DATE: 20231221
